FAERS Safety Report 12242692 (Version 1)
Quarter: 2016Q2

REPORT INFORMATION
  Report Type: Spontaneous
  Country: US (occurrence: US)
  Receive Date: 20160406
  Receipt Date: 20160406
  Transmission Date: 20160815
  Serious: Yes (Other)
  Sender: FDA-Public Use
  Company Number: US-JNJFOC-20160400554

PATIENT
  Age: 21 Year
  Sex: Male

DRUGS (2)
  1. HEROIN [Suspect]
     Active Substance: DIACETYLMORPHINE
     Indication: PRODUCT USED FOR UNKNOWN INDICATION
     Route: 065
  2. FENTANYL. [Suspect]
     Active Substance: FENTANYL
     Indication: PRODUCT USED FOR UNKNOWN INDICATION
     Route: 065

REACTIONS (6)
  - Unresponsive to stimuli [Recovered/Resolved]
  - Overdose [Unknown]
  - Drug diversion [Unknown]
  - Miosis [Recovered/Resolved]
  - Dyspnoea [Recovered/Resolved]
  - Intentional product misuse [Unknown]
